FAERS Safety Report 9284861 (Version 1)
Quarter: 2013Q2

REPORT INFORMATION
  Report Type: Spontaneous
  Country: US (occurrence: US)
  Receive Date: 20130513
  Receipt Date: 20130513
  Transmission Date: 20140414
  Serious: No
  Sender: FDA-Public Use
  Company Number: US-BIOGENIDEC-2013BI042106

PATIENT
  Sex: Female

DRUGS (1)
  1. TYSABRI [Suspect]
     Indication: MULTIPLE SCLEROSIS
     Route: 042
     Dates: start: 20070809

REACTIONS (8)
  - Cough [Not Recovered/Not Resolved]
  - Rhinorrhoea [Unknown]
  - Upper-airway cough syndrome [Unknown]
  - Throat irritation [Unknown]
  - Sinus congestion [Unknown]
  - General symptom [Unknown]
  - Productive cough [Unknown]
  - Fatigue [Unknown]
